FAERS Safety Report 5572577-4 (Version None)
Quarter: 2007Q4

REPORT INFORMATION
  Report Type: 
  Country: None (occurrence: None)
  Receive Date: 20071130
  Receipt Date: 20070417
  Transmission Date: 20080405
  Serious: Yes (Other)
  Sender: FDA-Public Use
  Company Number: WAES 0704USA04187

PATIENT
  Age: 77 Year
  Sex: Female

DRUGS (4)
  1. FOSAMAX [Suspect]
     Dosage: 70 MG DAILY PO, PO
     Route: 048
     Dates: end: 20040101
  2. FOSAMAX [Suspect]
     Dosage: 70 MG DAILY PO, PO
     Route: 048
     Dates: start: 20040422, end: 20041230
  3. ATROVENT [Concomitant]
  4. ALBUTEROL [Concomitant]

REACTIONS (4)
  - DEPRESSION [None]
  - FALL [None]
  - OSTEONECROSIS [None]
  - WRIST FRACTURE [None]
